FAERS Safety Report 7485968-1 (Version None)
Quarter: 2011Q2

REPORT INFORMATION
  Report Type: 
  Country: None (occurrence: None)
  Receive Date: 20110509
  Receipt Date: 20110426
  Transmission Date: 20111010
  Serious: Yes (Hospitalization)
  Sender: FDA-Public Use
  Company Number: WAES 1104USA02747

PATIENT
  Age: 46 Year
  Sex: Female

DRUGS (9)
  1. NOVORAPID (INSULIN ASPART) 27 IU/ UNK [Suspect]
  2. HYDROCHLOROTHIAZIDE [Suspect]
  3. METFORMIN HCL [Suspect]
     Dates: start: 20110110, end: 20110110
  4. LISINOPRIL [Suspect]
     Dosage: PO
     Route: 048
     Dates: end: 20110107
  5. BLINDED THERAPY [Suspect]
     Dosage: PO
     Route: 048
     Dates: start: 20100826
  6. ASPIRIN [Concomitant]
  7. LANTUS [Suspect]
  8. SPIRONOLACTONE [Suspect]
  9. CELEBREX [Suspect]

REACTIONS (5)
  - ENTERITIS [None]
  - CAMPYLOBACTER TEST POSITIVE [None]
  - DEHYDRATION [None]
  - RENAL FAILURE ACUTE [None]
  - GASTROENTERITIS VIRAL [None]
